FAERS Safety Report 16930127 (Version 1)
Quarter: 2019Q4

REPORT INFORMATION
  Report Type: Spontaneous
  Country: US (occurrence: US)
  Receive Date: 20191017
  Receipt Date: 20191017
  Transmission Date: 20200122
  Serious: No
  Sender: FDA-Public Use
  Company Number: US-BAYER-2019-187037

PATIENT
  Age: 63 Year
  Sex: Female

DRUGS (1)
  1. GADAVIST [Suspect]
     Active Substance: GADOBUTROL
     Indication: BREAST SCAN
     Dosage: 7.5 ML, ONCE
     Route: 042

REACTIONS (3)
  - Nausea [None]
  - Skin warm [None]
  - Trance [None]

NARRATIVE: CASE EVENT DATE: 20191008
